FAERS Safety Report 5623584-4 (Version None)
Quarter: 2008Q1

REPORT INFORMATION
  Report Type: 
  Country: None (occurrence: None)
  Receive Date: 20080212
  Receipt Date: 20080204
  Transmission Date: 20080703
  Serious: Yes (Other)
  Sender: FDA-Public Use
  Company Number: US-BOEHRINGER INGELHEIM GMBH, GERMANY-2006-BP-11466BP

PATIENT
  Sex: Male

DRUGS (7)
  1. FLOMAX [Suspect]
     Indication: BENIGN PROSTATIC HYPERPLASIA
     Route: 048
     Dates: start: 20040201
  2. LEXAPRO [Suspect]
     Indication: INSOMNIA
     Dates: start: 20060920
  3. BENICAR [Concomitant]
     Indication: HYPERTENSION
  4. LIPITOR [Concomitant]
     Indication: BLOOD CHOLESTEROL INCREASED
  5. ALEVE [Concomitant]
  6. ADVIL [Concomitant]
  7. TYLENOL (CAPLET) [Concomitant]

REACTIONS (12)
  - CARDIAC DISORDER [None]
  - COLON CANCER STAGE II [None]
  - DEHYDRATION [None]
  - DIZZINESS [None]
  - EYE DISORDER [None]
  - GAIT DISTURBANCE [None]
  - INSOMNIA [None]
  - LACRIMATION INCREASED [None]
  - RETROGRADE EJACULATION [None]
  - RHINORRHOEA [None]
  - URINARY RETENTION [None]
  - VISION BLURRED [None]
